FAERS Safety Report 6528748-3 (Version None)
Quarter: 2009Q4

REPORT INFORMATION
  Report Type: 
  Country: None (occurrence: None)
  Receive Date: 20091231
  Receipt Date: 20091216
  Transmission Date: 20100525
  Serious: Yes (Disabling)
  Sender: FDA-Public Use
  Company Number: 2009AL007921

PATIENT
  Age: 76 Year
  Sex: Male

DRUGS (7)
  1. TEMAZEPAM [Suspect]
     Indication: INSOMNIA
     Dosage: 5 ML;HS;PO
     Route: 048
     Dates: start: 20080313, end: 20080316
  2. GLICLAZIDE [Concomitant]
  3. PARACETAMOL [Concomitant]
  4. ACETYLSALICYLIC ACID [Concomitant]
  5. OMEPRAZOLE [Concomitant]
  6. LISINOPRIL [Concomitant]
  7. IBUPROFEN [Concomitant]

REACTIONS (6)
  - ABDOMINAL DISCOMFORT [None]
  - CHEST PAIN [None]
  - COUGH [None]
  - INSOMNIA [None]
  - OROPHARYNGEAL PAIN [None]
  - THROAT IRRITATION [None]
